FAERS Safety Report 6723411-8 (Version None)
Quarter: 2010Q2

REPORT INFORMATION
  Report Type: 
  Country: None (occurrence: None)
  Receive Date: 20100513
  Receipt Date: 20100430
  Transmission Date: 20101027
  Serious: Yes (Other)
  Sender: FDA-Public Use
  Company Number: PHHY2010US28540

PATIENT
  Age: 80 Year
  Sex: Male

DRUGS (1)
  1. DIOVAN [Suspect]
     Dosage: 320 MG 5 TABLETS
     Route: 048

REACTIONS (1)
  - INTENTIONAL OVERDOSE [None]
